FAERS Safety Report 15993031 (Version 1)
Quarter: 2019Q1

REPORT INFORMATION
  Report Type: Report from Study
  Country: None (occurrence: KR)
  Receive Date: 20190221
  Receipt Date: 20190221
  Transmission Date: 20190418
  Serious: Yes (Other)
  Sender: FDA-Public Use
  Company Number: KR-ABBVIE-19K-090-2675282-00

PATIENT
  Sex: Male

DRUGS (1)
  1. HUMIRA [Suspect]
     Active Substance: ADALIMUMAB
     Indication: RHEUMATOID ARTHRITIS
     Route: 058

REACTIONS (97)
  - Cholelithiasis [Recovered/Resolved]
  - Breast operation [Recovered/Resolved]
  - Knee arthroplasty [Recovered/Resolved]
  - Neoplasm malignant [Not Recovered/Not Resolved]
  - Duodenitis [Recovered/Resolved]
  - Dyspepsia [Recovered/Resolved]
  - Enteritis [Recovered/Resolved]
  - Hyperlipidaemia [Recovered/Resolved]
  - Periarthritis [Not Recovered/Not Resolved]
  - Atelectasis [Not Recovered/Not Resolved]
  - Nasopharyngitis [Not Recovered/Not Resolved]
  - Cardiac failure congestive [Not Recovered/Not Resolved]
  - Hypothyroidism [Not Recovered/Not Resolved]
  - Aphthous ulcer [Recovered/Resolved]
  - Escherichia infection [Recovered/Resolved]
  - Hand fracture [Recovered/Resolved]
  - Spinal compression fracture [Not Recovered/Not Resolved]
  - Tension headache [Recovered/Resolved]
  - Menstruation irregular [Unknown]
  - Bronchiectasis [Not Recovered/Not Resolved]
  - Rash [Recovered/Resolved]
  - Palmoplantar pustulosis [Not Recovered/Not Resolved]
  - Gastrointestinal endoscopic therapy [Recovered/Resolved]
  - Interstitial lung disease [Not Recovered/Not Resolved]
  - Chronic gastritis [Not Recovered/Not Resolved]
  - Hyperlipidaemia [Not Recovered/Not Resolved]
  - Femur fracture [Recovered/Resolved]
  - Foot deformity [Not Recovered/Not Resolved]
  - Arthralgia [Not Recovered/Not Resolved]
  - Intracranial aneurysm [Not Recovered/Not Resolved]
  - Depression [Not Recovered/Not Resolved]
  - Upper respiratory tract infection [Recovered/Resolved]
  - Body tinea [Recovered/Resolved]
  - Orthopaedic procedure [Not Recovered/Not Resolved]
  - Cataract [Recovered/Resolved]
  - Cytopenia [Not Recovered/Not Resolved]
  - Dry eye [Not Recovered/Not Resolved]
  - Herpes zoster [Recovered/Resolved]
  - Back pain [Not Recovered/Not Resolved]
  - Dizziness [Recovered/Resolved]
  - Insomnia [Not Recovered/Not Resolved]
  - Renal cyst [Not Recovered/Not Resolved]
  - Hypertension [Not Recovered/Not Resolved]
  - Deafness neurosensory [Recovered/Resolved]
  - Uterine leiomyoma [Not Recovered/Not Resolved]
  - Neutropenia [Not Recovered/Not Resolved]
  - Neutropenia [Recovered/Resolved]
  - Leukopenia [Recovered/Resolved]
  - Peptic ulcer [Not Recovered/Not Resolved]
  - Gastrooesophageal reflux disease [Recovered/Resolved]
  - Cholecystitis chronic [Not Recovered/Not Resolved]
  - Localised infection [Recovered/Resolved]
  - Compression fracture [Recovered/Resolved]
  - Facet joint syndrome [Not Recovered/Not Resolved]
  - Headache [Not Recovered/Not Resolved]
  - Pulmonary mass [Not Recovered/Not Resolved]
  - Telangiectasia [Recovered/Resolved]
  - Benign breast neoplasm [Not Recovered/Not Resolved]
  - Bone operation [Recovered/Resolved]
  - Anaemia [Recovered/Resolved]
  - Neurotrophic keratopathy [Not Recovered/Not Resolved]
  - Primary biliary cholangitis [Not Recovered/Not Resolved]
  - Bacterial infection [Recovered/Resolved]
  - Joint range of motion decreased [Not Recovered/Not Resolved]
  - Insomnia [Recovered/Resolved]
  - Nasopharyngitis [Recovered/Resolved]
  - Skin papilloma [Recovered/Resolved]
  - Nerve block [Recovered/Resolved]
  - Corneal cyst [Not Recovered/Not Resolved]
  - Adenoma benign [Recovered/Resolved]
  - Anaphylactic reaction [Recovered/Resolved]
  - Anaemia [Not Recovered/Not Resolved]
  - Diarrhoea [Recovered/Resolved]
  - Lung infection [Recovered/Resolved]
  - Diabetes mellitus [Not Recovered/Not Resolved]
  - Blood glucose abnormal [Not Recovered/Not Resolved]
  - Compression fracture [Not Recovered/Not Resolved]
  - Osteoarthritis [Not Recovered/Not Resolved]
  - Rotator cuff syndrome [Not Recovered/Not Resolved]
  - Musculoskeletal pain [Recovered/Resolved]
  - Sjogren^s syndrome [Not Recovered/Not Resolved]
  - Azotaemia [Recovered/Resolved]
  - Erectile dysfunction [Recovered/Resolved]
  - Bronchiectasis [Recovered/Resolved]
  - Emphysema [Not Recovered/Not Resolved]
  - Gastric adenoma [Recovered/Resolved]
  - Infusion related reaction [Recovered/Resolved]
  - Transaminases increased [Recovered/Resolved]
  - Weight decreased [Not Recovered/Not Resolved]
  - Hyperkalaemia [Recovered/Resolved]
  - Osteopenia [Not Recovered/Not Resolved]
  - Osteoporosis [Recovered/Resolved]
  - Carpal tunnel syndrome [Recovered/Resolved]
  - Migraine [Recovered/Resolved]
  - Rash [Not Recovered/Not Resolved]
  - Behcet^s syndrome [Recovered/Resolved]
  - Osteoporosis [Not Recovered/Not Resolved]
